FAERS Safety Report 4487902-5 (Version None)
Quarter: 2004Q4

REPORT INFORMATION
  Report Type: 
  Country: None (occurrence: None)
  Receive Date: 20041026
  Receipt Date: 20041008
  Transmission Date: 20050328
  Serious: Yes (Death, Other)
  Sender: FDA-Public Use
  Company Number: US_0409105198

PATIENT
  Age: 62 Year
  Sex: Male
  Weight: 79 kg

DRUGS (7)
  1. GEMCITABINE HYDROCHLORIDE          (GEMCITABINE) [Suspect]
     Indication: NON-SMALL CELL LUNG CANCER
     Dosage: 1000 MG/M2 OTHER
     Route: 042
     Dates: start: 20040721
  2. CARBOPLATIN [Suspect]
     Indication: NON-SMALL CELL LUNG CANCER
     Dates: start: 20040721
  3. MS CONTIN [Concomitant]
  4. MORPHINE SULFATE [Concomitant]
  5. RYTHMOL [Concomitant]
  6. LEVAQUIN [Concomitant]
  7. COUMADIN [Concomitant]

REACTIONS (12)
  - ARRHYTHMIA [None]
  - BLOOD ALBUMIN DECREASED [None]
  - BLOOD UREA INCREASED [None]
  - COMA [None]
  - HAEMOGLOBIN DECREASED [None]
  - HAEMORRHAGE [None]
  - INTERNATIONAL NORMALISED RATIO INCREASED [None]
  - MALIGNANT NEOPLASM PROGRESSION [None]
  - NON-SMALL CELL LUNG CANCER [None]
  - PROTHROMBIN TIME PROLONGED [None]
  - THROMBOCYTOPENIA [None]
  - WHITE BLOOD CELL COUNT DECREASED [None]
